FAERS Safety Report 7963445-9 (Version None)
Quarter: 2011Q4

REPORT INFORMATION
  Report Type: 
  Country: None (occurrence: None)
  Receive Date: 20111208
  Receipt Date: 20111201
  Transmission Date: 20120403
  Serious: Yes (Other)
  Sender: FDA-Public Use
  Company Number: US-BAYER-200943573NA

PATIENT
  Age: 55 Year
  Sex: Male
  Weight: 97.506 kg

DRUGS (33)
  1. METOPROLOL TARTRATE [Concomitant]
     Route: 048
  2. BUMEX [Concomitant]
     Dosage: UNK
     Dates: start: 20040211
  3. PLATELETS [Concomitant]
     Dosage: 2 U, UNK
     Dates: start: 20040210
  4. TRASYLOL [Suspect]
     Indication: CARDIAC OPERATION
     Dosage: 200 ML, OVER 30 MINUTES
     Route: 042
     Dates: start: 20040210, end: 20040210
  5. AMIODARONE HCL [Concomitant]
     Dosage: UNK
     Route: 048
  6. PROTAMINE SULFATE [Concomitant]
     Dosage: 200 MG, UNK
     Route: 042
     Dates: start: 20040210, end: 20040210
  7. PROTAMINE SULFATE [Concomitant]
     Dosage: 50 MG, BID
     Route: 042
     Dates: start: 20040210, end: 20040210
  8. BUMEX [Concomitant]
     Dosage: 1 MG, PRN
     Dates: start: 20040212
  9. FRESH FROZEN PLASMA [Concomitant]
     Dosage: 4 U, UNK
     Dates: start: 20040210
  10. NEXIUM [Concomitant]
     Route: 048
  11. MAGNESIUM SULFATE [Concomitant]
     Dosage: 2 G, BID
     Route: 042
     Dates: start: 20040210, end: 20040210
  12. ATROPINE [Concomitant]
     Dosage: 0.4 MG, UNK
     Route: 042
     Dates: start: 20040210, end: 20040210
  13. CATAPRES [Concomitant]
     Dosage: 0.3 MG, UNK
  14. SOLU-MEDROL [Concomitant]
     Dosage: 125 MG, UNK
     Route: 042
     Dates: start: 20040210
  15. ACETYLSALICYLIC ACID SRT [Concomitant]
     Route: 048
  16. CLONIDINE [Concomitant]
     Route: 048
  17. HEPARIN [Concomitant]
     Dosage: 5000 U, UNK
     Route: 042
     Dates: start: 20040210, end: 20040210
  18. EPINEPHRINE [Concomitant]
     Dosage: DRIP
     Route: 042
     Dates: start: 20040210, end: 20040210
  19. RED BLOOD CELLS [Concomitant]
     Dosage: 4 U, UNK
     Route: 042
     Dates: start: 20040210
  20. SIMVASTATIN [Concomitant]
     Route: 048
  21. AMLODIPINE [Concomitant]
     Route: 048
  22. ANCEF [Concomitant]
     Dosage: 2 G, UNK
     Route: 042
     Dates: start: 20040210
  23. DILAUDID [Concomitant]
     Dosage: 1.5 MG, UNK
     Route: 042
     Dates: start: 20040210
  24. VASOPRESSIN [Concomitant]
     Dosage: UNK
     Route: 042
     Dates: start: 20040210
  25. ALPRAZOLAM [Concomitant]
     Dosage: 0.5 MG, BID
  26. TRASYLOL [Suspect]
     Indication: AORTIC DISSECTION
     Dosage: 50ML/HR
     Route: 042
     Dates: start: 20040210, end: 20040210
  27. AMIODARONE HCL [Concomitant]
     Dosage: 150 MG, BOLUS THEN DRIP
     Route: 042
     Dates: start: 20040210
  28. LIDOCAINE [Concomitant]
     Dosage: 100 MG, UNK
     Dates: start: 20040210, end: 20040210
  29. CITALOPRAM [Concomitant]
  30. LABETALOL HCL [Concomitant]
     Dosage: UNK
     Route: 042
     Dates: start: 20040210
  31. TRASYLOL [Suspect]
     Dosage: 200ML, PUMP PRIME
     Route: 042
     Dates: start: 20040210, end: 20040210
  32. LISINOPRIL [Concomitant]
     Dosage: 20 MG, UNK
  33. LEXAPRO [Concomitant]
     Dosage: 10 MG, UNK

REACTIONS (4)
  - PAIN [None]
  - UNEVALUABLE EVENT [None]
  - RENAL FAILURE [None]
  - INJURY [None]
